FAERS Safety Report 4524068-7 (Version None)
Quarter: 2004Q4

REPORT INFORMATION
  Report Type: 
  Country: None (occurrence: None)
  Receive Date: 20041119
  Receipt Date: 20040811
  Transmission Date: 20050328
  Serious: No
  Sender: FDA-Public Use
  Company Number: PHEH2004US08675

PATIENT
  Age: 57 Year
  Sex: Female

DRUGS (5)
  1. ZELNORM [Suspect]
     Indication: IRRITABLE BOWEL SYNDROME
     Dosage: SEE IMAGE
     Route: 048
     Dates: start: 20040727, end: 20040731
  2. ZELNORM [Suspect]
     Indication: IRRITABLE BOWEL SYNDROME
     Dosage: SEE IMAGE
     Route: 048
     Dates: start: 20040601
  3. ZOLOFT [Concomitant]
  4. PREMPRO [Concomitant]
  5. FOLIC ACID [Concomitant]

REACTIONS (3)
  - ANXIETY [None]
  - EMOTIONAL DISTRESS [None]
  - RESTLESSNESS [None]
